FAERS Safety Report 14362667 (Version 1)
Quarter: 2018Q1

REPORT INFORMATION
  Report Type: Spontaneous
  Country: US (occurrence: US)
  Receive Date: 20180105
  Receipt Date: 20180105
  Transmission Date: 20180509
  Serious: No
  Sender: FDA-Public Use
  Company Number: None

PATIENT
  Age: 25 Year
  Sex: Male
  Weight: 74.4 kg

DRUGS (1)
  1. OCREVUS [Suspect]
     Active Substance: OCRELIZUMAB
     Indication: MULTIPLE SCLEROSIS
     Dosage: ?          OTHER FREQUENCY:Q 2 WEEKS;?
     Route: 041
     Dates: start: 20171215, end: 20171215

REACTIONS (4)
  - Oropharyngeal pain [None]
  - Erythema [None]
  - Skin disorder [None]
  - Infusion related reaction [None]
